FAERS Safety Report 17874854 (Version 1)
Quarter: 2020Q2

REPORT INFORMATION
  Report Type: Spontaneous
  Country: AU (occurrence: AU)
  Receive Date: 20200609
  Receipt Date: 20200609
  Transmission Date: 20200714
  Serious: Yes (Hospitalization)
  Sender: FDA-Public Use
  Company Number: AU-MYLANLABS-2020M1055147

PATIENT
  Age: 72 Year
  Sex: Female

DRUGS (11)
  1. DIAZEPAM. [Suspect]
     Active Substance: DIAZEPAM
     Indication: ANXIOLYTIC THERAPY
     Route: 065
  2. HYDROMORPHONE [Concomitant]
     Active Substance: HYDROMORPHONE
     Indication: ABDOMINAL PAIN
     Route: 065
  3. CLONIDINE. [Suspect]
     Active Substance: CLONIDINE
     Dosage: 100 MICROGRAM, QD, EVERY NIGHT
     Route: 058
  4. HYOSCINE BUTYLBROMIDE [Suspect]
     Active Substance: BUTYLSCOPOLAMINE BROMIDE
     Indication: ABDOMINAL PAIN
     Route: 065
  5. OLANZAPINE. [Suspect]
     Active Substance: OLANZAPINE
     Indication: HALLUCINATION
     Dosage: 5 MILLIGRAM, QD, EVERY NIGHT
     Route: 065
  6. MORPHINE [Suspect]
     Active Substance: MORPHINE
     Indication: ABDOMINAL PAIN
     Route: 048
  7. MORPHINE [Suspect]
     Active Substance: MORPHINE
     Indication: ABDOMINAL PAIN
     Route: 058
  8. CLONIDINE. [Suspect]
     Active Substance: CLONIDINE
     Indication: HALLUCINATION
     Dosage: 100 MICROGRAM, QD, EVERY NIGHT
     Route: 058
  9. CLONIDINE. [Suspect]
     Active Substance: CLONIDINE
     Indication: HALLUCINATION
     Dosage: 150 MICROGRAM, QD, AT NIGHT
     Route: 048
  10. LEVOMEPROMAZINE [Suspect]
     Active Substance: LEVOMEPROMAZINE
     Indication: HALLUCINATION
     Dosage: 12.5 MILLIGRAM, QD, EVERY NIGHT
     Route: 058
  11. HALOPERIDOL. [Suspect]
     Active Substance: HALOPERIDOL
     Indication: HALLUCINATION
     Dosage: 1 MILLIGRAM, BID
     Route: 058

REACTIONS (7)
  - Hallucination, auditory [Recovered/Resolved]
  - Hallucination, visual [Recovered/Resolved]
  - Neurotoxicity [Recovered/Resolved]
  - Drug ineffective [Unknown]
  - Condition aggravated [Unknown]
  - Hallucination [Recovered/Resolved]
  - Somnolence [Unknown]
